FAERS Safety Report 12613019 (Version 1)
Quarter: 2016Q3

REPORT INFORMATION
  Report Type: Report from Study
  Country: US (occurrence: US)
  Receive Date: 20160802
  Receipt Date: 20160802
  Transmission Date: 20161109
  Serious: Yes (Life-Threatening, Other)
  Sender: FDA-Public Use
  Company Number: US-ROCHE-1805555

PATIENT
  Age: 20 Year
  Sex: Female

DRUGS (1)
  1. VISMODEGIB [Suspect]
     Active Substance: VISMODEGIB
     Indication: MEDULLOBLASTOMA
     Dosage: TREATMENT ASSIGNED CODE:TAC1, COURSE 1
     Route: 048
     Dates: start: 20120322, end: 20120422

REACTIONS (5)
  - Neck pain [Unknown]
  - Lymphocyte count decreased [Unknown]
  - Back pain [Unknown]
  - Hypokalaemia [Unknown]
  - Neck pain [Unknown]

NARRATIVE: CASE EVENT DATE: 20120423
